FAERS Safety Report 4495605-6 (Version None)
Quarter: 2004Q4

REPORT INFORMATION
  Report Type: 
  Country: None (occurrence: None)
  Receive Date: 20041103
  Receipt Date: 20041018
  Transmission Date: 20050328
  Serious: Yes (Death)
  Sender: FDA-Public Use
  Company Number: 2004-BP-10449RO

PATIENT
  Age: 92 Year
  Sex: Male

DRUGS (3)
  1. FUROSEMIDE TABLETS USP, 20 MG (FUROSEMIDE) [Suspect]
  2. POTASSIUM CHLORIDE [Suspect]
  3. MIRTAZAPINE TABLETS, 15 MG (MIRTAZAPINE) [Suspect]

REACTIONS (3)
  - BLOOD POTASSIUM INCREASED [None]
  - COMPLETED SUICIDE [None]
  - MULTIPLE DRUG OVERDOSE INTENTIONAL [None]
